FAERS Safety Report 24572829 (Version 1)
Quarter: 2024Q4

REPORT INFORMATION
  Report Type: Spontaneous
  Country: US (occurrence: None)
  Receive Date: 20241101
  Receipt Date: 20241101
  Transmission Date: 20250114
  Serious: Yes (Hospitalization)
  Sender: Public
  Company Number: None

PATIENT
  Age: 57 Year
  Sex: Male

DRUGS (13)
  1. ENVARSUS XR [Suspect]
     Active Substance: TACROLIMUS
     Indication: Renal transplant
     Route: 048
     Dates: start: 20240911
  2. TACROLIMUS [Suspect]
     Active Substance: TACROLIMUS
  3. ACYCLOVIR CAP 200MG [Concomitant]
  4. ALLOPURINOL TAB 100MG [Concomitant]
  5. ASPIRIN [Concomitant]
     Active Substance: ASPIRIN
  6. ATORVASTATIN TAB 20MG [Concomitant]
  7. CALCITRIOL [Concomitant]
     Active Substance: CALCITRIOL
  8. DEXAMETH PHO INJ 120MG/30 [Concomitant]
  9. DEXAMETH PHO INJ 120MG/30 [Concomitant]
  10. FUROSEMIDE [Concomitant]
     Active Substance: FUROSEMIDE
  11. GABAPENTIN [Concomitant]
     Active Substance: GABAPENTIN
  12. HYDROCO/APAP TAB 7.5-325 [Concomitant]
  13. ACETAMINOPHEN\HYDROCODONE [Concomitant]
     Active Substance: ACETAMINOPHEN\HYDROCODONE

REACTIONS (6)
  - Blastomycosis [None]
  - Dyspnoea [None]
  - Vomiting [None]
  - Nausea [None]
  - Tremor [None]
  - Unevaluable event [None]

NARRATIVE: CASE EVENT DATE: 20241025
